FAERS Safety Report 21673153 (Version 1)
Quarter: 2022Q4

REPORT INFORMATION
  Report Type: Spontaneous
  Country: PL (occurrence: PL)
  Receive Date: 20221202
  Receipt Date: 20221202
  Transmission Date: 20230113
  Serious: Yes (Hospitalization, Other)
  Sender: FDA-Public Use
  Company Number: PL-JNJFOC-20220541281

PATIENT
  Age: 60 Year
  Sex: Male

DRUGS (3)
  1. ERLEADA [Suspect]
     Active Substance: APALUTAMIDE
     Indication: Hormone-refractory prostate cancer
     Route: 048
     Dates: start: 20220301
  2. BISEPTOL [Concomitant]
     Active Substance: SULFAMETHOXAZOLE\TRIMETHOPRIM
     Indication: Product used for unknown indication
     Route: 065
  3. CETIX [CEFIXIME TRIHYDRATE] [Concomitant]
     Indication: Product used for unknown indication
     Route: 065

REACTIONS (14)
  - Prostate cancer recurrent [Unknown]
  - Urinary retention [Unknown]
  - Urethral haemorrhage [Unknown]
  - Abdominal pain lower [Recovering/Resolving]
  - Rash [Recovered/Resolved]
  - Scoliosis [Unknown]
  - Mobility decreased [Recovering/Resolving]
  - Pyrexia [Recovered/Resolved]
  - Abscess [Unknown]
  - Diarrhoea [Unknown]
  - Pyuria [Unknown]
  - Pain in extremity [Recovering/Resolving]
  - Pelvic pain [Recovering/Resolving]
  - Groin pain [Recovering/Resolving]

NARRATIVE: CASE EVENT DATE: 20220524
